FAERS Safety Report 11739752 (Version 2)
Quarter: 2015Q4

REPORT INFORMATION
  Report Type: Spontaneous
  Country: US (occurrence: US)
  Receive Date: 20151110
  Receipt Date: 20151120
  Transmission Date: 20160304
  Serious: No
  Sender: FDA-Public Use
  Company Number: US-ELI_LILLY_AND_COMPANY-US201207008854

PATIENT
  Sex: Female

DRUGS (4)
  1. FORTEO [Suspect]
     Active Substance: TERIPARATIDE
     Dosage: UNK, UNKNOWN
  2. FORTEO [Suspect]
     Active Substance: TERIPARATIDE
     Dosage: UNK, UNKNOWN
  3. NITRO                              /00003201/ [Concomitant]
     Indication: CARDIAC OPERATION
  4. FORTEO [Suspect]
     Active Substance: TERIPARATIDE
     Dosage: UNK, UNKNOWN
     Route: 065

REACTIONS (8)
  - Musculoskeletal pain [Recovered/Resolved]
  - Intentional product misuse [Recovered/Resolved]
  - Arthralgia [Recovered/Resolved]
  - Heart rate increased [Recovered/Resolved]
  - Unevaluable event [Recovered/Resolved]
  - Palpitations [Recovered/Resolved]
  - Bone pain [Recovered/Resolved]
  - Dyspnoea [Recovered/Resolved]
